FAERS Safety Report 5774749-2 (Version None)
Quarter: 2008Q2

REPORT INFORMATION
  Report Type: 
  Country: None (occurrence: None)
  Receive Date: 20080612
  Receipt Date: 20080603
  Transmission Date: 20081010
  Serious: Yes (Hospitalization, Other)
  Sender: FDA-Public Use
  Company Number: 2008S1009671

PATIENT
  Sex: Male

DRUGS (2)
  1. AMNESTEEM [Suspect]
     Indication: ACNE
     Dosage: ORAL
     Route: 048
  2. CLARAVIS [Suspect]
     Indication: ACNE
     Dosage: ORAL
     Route: 048

REACTIONS (3)
  - CROHN'S DISEASE [None]
  - INFLAMMATORY BOWEL DISEASE [None]
  - INJURY [None]
